FAERS Safety Report 8175691 (Version 6)
Quarter: 2012Q4

REPORT INFORMATION
  Report Type: Spontaneous
  Country: DE (occurrence: None)
  Receive Date: 20110930
  Receipt Date: 20121015
  Transmission Date: 20130627
  Serious: Yes (Hospitalization)
  Sender: FDA-Public Use
  Company Number: EU-2011-10178

PATIENT
  Age: 60 Year
  Sex: Female
  Weight: 57 kg

DRUGS (36)
  1. ASS (ACETYLSALICYLIC ACID) [Concomitant]
  2. SAB SIMPLEX (SIMETICONE) ORAL DROPS [Concomitant]
  3. ESOMEPRAZOL (ESOMEPRAZOLE) [Concomitant]
  4. L-THYROXIN (LEVOTHYROXINE SODIUM) [Concomitant]
  5. PANCREATIN (PANCREATIN) CAPSULE [Concomitant]
  6. AMITRIPTYLINE (AMITRIPTYLINE) [Concomitant]
  7. VALORON (TILIDINE HYDROCHLORIDE) [Concomitant]
  8. NOVAMINSULFON (NOVAMINSULFON) [Concomitant]
  9. CALCIUM (CALCIUM) TABLET [Concomitant]
  10. ARANESP (DARBEPOETIN ALFA) [Concomitant]
  11. ALUDROX (ALUMINIUM HYDROXIDE-MAGNESIUM CARBONATE GEL, MAGNESIUM HYDROXIDE) [Concomitant]
  12. APONAL (DOXEPIN HYDROCHLORIDE) [Concomitant]
  13. CALCIUMACETAT (CALCIUM ACETATE) [Concomitant]
  14. MAGNESIUM VERLA (MAGNESIUM GLUTAMATE) [Concomitant]
  15. TORASEMID (TORASEMIDE) [Concomitant]
  16. SAMSCA [Suspect]
     Indication: INAPPROPRIATE ANTIDIURETIC HORMONE SECRETION
     Dosage: 7.5 MG MILLIGRAM(S), DAILY DOSE, ORAL
     Route: 048
     Dates: start: 20110113, end: 20120305
  17. SAMSCA [Suspect]
     Indication: HYPONATRAEMIA
     Dosage: 7.5 MG MILLIGRAM(S), DAILY DOSE, ORAL
     Route: 048
     Dates: start: 20110113, end: 20120305
  18. SAMSCA [Suspect]
     Indication: INAPPROPRIATE ANTIDIURETIC HORMONE SECRETION
     Route: 048
     Dates: start: 20120305, end: 20120307
  19. SAMSCA [Suspect]
     Indication: HYPONATRAEMIA
     Route: 048
     Dates: start: 20120305, end: 20120307
  20. SAMSCA [Suspect]
     Indication: INAPPROPRIATE ANTIDIURETIC HORMONE SECRETION
     Route: 048
     Dates: start: 20120308, end: 20120308
  21. SAMSCA [Suspect]
     Indication: HYPONATRAEMIA
     Route: 048
     Dates: start: 20120308, end: 20120308
  22. SAMSCA [Suspect]
     Indication: INAPPROPRIATE ANTIDIURETIC HORMONE SECRETION
     Route: 048
     Dates: start: 20120309, end: 20120403
  23. SAMSCA [Suspect]
     Indication: HYPONATRAEMIA
     Route: 048
     Dates: start: 20120309, end: 20120403
  24. SAMSCA [Suspect]
     Indication: INAPPROPRIATE ANTIDIURETIC HORMONE SECRETION
     Route: 048
     Dates: start: 20120403, end: 20120925
  25. SAMSCA [Suspect]
     Indication: HYPONATRAEMIA
     Route: 048
     Dates: start: 20120403, end: 20120925
  26. SAMSCA [Suspect]
     Indication: INAPPROPRIATE ANTIDIURETIC HORMONE SECRETION
     Route: 048
     Dates: start: 20120926
  27. SAMSCA [Suspect]
     Indication: HYPONATRAEMIA
     Route: 048
     Dates: start: 20120926
  28. SALINE (SALINE) [Concomitant]
  29. LOSARTAN (LOSARTAN) [Concomitant]
  30. ALLOPURINOL [Concomitant]
  31. PRESOMEN COMP (ESTROGENS CONJUGATED, MEDROGESTONE) [Concomitant]
  32. ROCALTROL [Concomitant]
  33. SANDOSTATIN [Concomitant]
  34. SPIRIVA [Concomitant]
  35. ONBREZ (INDACATEROL MALEATE) [Concomitant]
  36. NEBILET (NEBIVOLOL HYDROCHLORIDE) [Concomitant]

REACTIONS (12)
  - Nephrotic syndrome [None]
  - Oedema [None]
  - General physical health deterioration [None]
  - Wrong technique in drug usage process [None]
  - Treatment noncompliance [None]
  - Blood sodium decreased [None]
  - Dyspnoea [None]
  - Chest pain [None]
  - Wheezing [None]
  - Muscle spasms [None]
  - Anaemia [None]
  - Cardiac failure [None]
